FAERS Safety Report 19034848 (Version 2)
Quarter: 2021Q1

REPORT INFORMATION
  Report Type: Spontaneous
  Country: US (occurrence: US)
  Receive Date: 20210320
  Receipt Date: 20210323
  Transmission Date: 20210420
  Serious: No
  Sender: FDA-Public Use
  Company Number: NVSC2021US063404

PATIENT
  Age: 68 Year
  Sex: Male

DRUGS (2)
  1. BENGAY ARTHRITIS PAIN RELIEVING [Suspect]
     Active Substance: MENTHOL\METHYL SALICYLATE
     Indication: ARTHRITIS
     Dosage: UNK
     Route: 065
  2. VOLTAREN [Suspect]
     Active Substance: DICLOFENAC SODIUM
     Indication: ARTHRITIS
     Dosage: 4 DF (APPLICATION)
     Route: 065
     Dates: start: 20210310

REACTIONS (4)
  - Condition aggravated [Unknown]
  - Erythema [Unknown]
  - Burning sensation [Unknown]
  - Product administration error [Unknown]

NARRATIVE: CASE EVENT DATE: 20210310
